FAERS Safety Report 16682287 (Version 1)
Quarter: 2019Q3

REPORT INFORMATION
  Report Type: Spontaneous
  Country: GB (occurrence: GB)
  Receive Date: 20190808
  Receipt Date: 20190808
  Transmission Date: 20191004
  Serious: Yes (Life-Threatening, Hospitalization, Disabling, Other)
  Sender: FDA-Public Use
  Company Number: GB-TEVA-2019-GB-1088881

PATIENT
  Age: 91 Year
  Sex: Female

DRUGS (12)
  1. CLOPIDOGREL [Suspect]
     Active Substance: CLOPIDOGREL BISULFATE
     Dosage: EVERY MORNING 75 MG
     Route: 048
  2. ADCAL-D3 [Concomitant]
     Active Substance: CALCIUM CARBONATE\CHOLECALCIFEROL
     Dosage: 2 DOSAGE FORMS
     Route: 048
  3. APIXABAN [Suspect]
     Active Substance: APIXABAN
     Dosage: 5 MG
     Route: 048
  4. GLYCERYL TRINITRATE [Concomitant]
     Active Substance: NITROGLYCERIN
     Dosage: 1-2 PUFFS
     Route: 060
  5. FUROSEMIDE. [Concomitant]
     Active Substance: FUROSEMIDE
     Dosage: EVERY MORNING 40 MG
  6. LANSOPRAZOLE. [Concomitant]
     Active Substance: LANSOPRAZOLE
     Dosage: EVERY MORNING 15 MG
     Route: 048
  7. ALENDRONIC ACID [Concomitant]
     Active Substance: ALENDRONIC ACID
     Dosage: 70 MG
     Route: 048
  8. RANOLAZINE. [Concomitant]
     Active Substance: RANOLAZINE
     Dosage: 1000 MG
     Route: 048
  9. SPIRONOLACTONE. [Concomitant]
     Active Substance: SPIRONOLACTONE
     Dosage: EVERY MORNING 25 MG
     Route: 048
  10. LEVOTHYROXINE SODIUM. [Concomitant]
     Active Substance: LEVOTHYROXINE SODIUM
     Dosage: EVERY MORNING 75 MICROGRAM
     Route: 048
  11. MIDODRINE [Concomitant]
     Active Substance: MIDODRINE
     Dosage: 7.5 MG
     Route: 048
  12. PARACETAMOL [Concomitant]
     Active Substance: ACETAMINOPHEN
     Dosage: 2000 MG
     Route: 048

REACTIONS (2)
  - Brain midline shift [Unknown]
  - Subdural haematoma [Recovered/Resolved with Sequelae]
